FAERS Safety Report 15725563 (Version 2)
Quarter: 2018Q4

REPORT INFORMATION
  Report Type: Spontaneous
  Country: IT (occurrence: IT)
  Receive Date: 20181215
  Receipt Date: 20181222
  Transmission Date: 20190205
  Serious: Yes (Other)
  Sender: FDA-Public Use
  Company Number: IT-ACCORD-096518

PATIENT
  Age: 77 Year
  Sex: Male

DRUGS (2)
  1. CLOZAPINE. [Suspect]
     Active Substance: CLOZAPINE
     Indication: PRODUCT USED FOR UNKNOWN INDICATION
     Route: 048
     Dates: start: 20161222
  2. CITALOPRAM [Interacting]
     Active Substance: CITALOPRAM HYDROBROMIDE
     Indication: PRODUCT USED FOR UNKNOWN INDICATION
     Route: 048
     Dates: start: 20161222, end: 20161222

REACTIONS (4)
  - Asthenia [Unknown]
  - Malaise [Unknown]
  - Drug interaction [Unknown]
  - Sopor [Unknown]

NARRATIVE: CASE EVENT DATE: 20161226
